FAERS Safety Report 4449667-2 (Version None)
Quarter: 2004Q3

REPORT INFORMATION
  Report Type: 
  Country: None (occurrence: None)
  Receive Date: 20040913
  Receipt Date: 20040901
  Transmission Date: 20050211
  Serious: Yes (Hospitalization)
  Sender: FDA-Public Use
  Company Number: 2004231475JP

PATIENT
  Age: 80 Year
  Sex: Male

DRUGS (4)
  1. ESTRACYT (ESTRAMUSTINE PHOSPHATE)CAPSULE [Suspect]
     Indication: PROSTATIC SPECIFIC ANTIGEN INCREASED
     Dosage: 560 MG, ORAL
     Route: 048
     Dates: start: 20040506, end: 20040518
  2. CHLORMADINONE ACETATE (CHLORMADINONE ACETATE) [Concomitant]
  3. BICALUTAMIDE [Concomitant]
  4. LACTOMIN (LACTOBACILLUS SPOROGENES) [Concomitant]

REACTIONS (6)
  - ALANINE AMINOTRANSFERASE INCREASED [None]
  - ASPARTATE AMINOTRANSFERASE INCREASED [None]
  - DIARRHOEA [None]
  - SPEECH DISORDER [None]
  - TONGUE OEDEMA [None]
  - VOMITING [None]
